FAERS Safety Report 11671777 (Version 1)
Quarter: 2015Q4

REPORT INFORMATION
  Report Type: Report from Study
  Country: US (occurrence: US)
  Receive Date: 20151028
  Receipt Date: 20151028
  Transmission Date: 20160304
  Serious: No
  Sender: FDA-Public Use
  Company Number: PHEH2014US024463

PATIENT
  Sex: Female

DRUGS (1)
  1. MYFORTIC [Suspect]
     Active Substance: MYCOPHENOLATE SODIUM
     Indication: PRODUCT USED FOR UNKNOWN INDICATION
     Dosage: 720 MG, TWICE A DAY
     Route: 048

REACTIONS (4)
  - Nasal congestion [Unknown]
  - Headache [Unknown]
  - Paranasal sinus discomfort [Unknown]
  - Influenza [Unknown]
